FAERS Safety Report 9373936 (Version 1)
Quarter: 2013Q2

REPORT INFORMATION
  Report Type: Report from Study
  Country: DE (occurrence: DE)
  Receive Date: 20130628
  Receipt Date: 20130628
  Transmission Date: 20140414
  Serious: Yes (Life-Threatening, Hospitalization)
  Sender: FDA-Public Use
  Company Number: DE-BRISTOL-MYERS SQUIBB COMPANY-19034453

PATIENT
  Age: 71 Year
  Sex: Female

DRUGS (3)
  1. CARBOPLATIN [Suspect]
     Indication: OVARIAN CANCER
     Dosage: RECENT DOSE-22MAY13
     Route: 042
     Dates: start: 20130227
  2. PACLITAXEL [Suspect]
     Indication: OVARIAN CANCER
     Dosage: RECENT DOSE-22MAY13
     Route: 042
  3. BEVACIZUMAB [Suspect]
     Indication: OVARIAN CANCER
     Dosage: RECENT DOSE-22MAY13
     Route: 042
     Dates: start: 20130227

REACTIONS (2)
  - Intestinal perforation [Not Recovered/Not Resolved]
  - Subileus [Recovering/Resolving]
